FAERS Safety Report 5197901-6 (Version None)
Quarter: 2007Q1

REPORT INFORMATION
  Report Type: 
  Country: None (occurrence: None)
  Receive Date: 20070103
  Receipt Date: 20061222
  Transmission Date: 20070707
  Serious: Yes (Hospitalization)
  Sender: FDA-Public Use
  Company Number: JP-ELI_LILLY_AND_COMPANY-JP200612004160

PATIENT
  Age: 57 Year
  Sex: Male
  Weight: 76 kg

DRUGS (9)
  1. LISPRO 25LIS75NPL [Suspect]
     Indication: DIABETES MELLITUS NON-INSULIN-DEPENDENT
     Dosage: 22 GTT, EACH MORNING
     Dates: start: 20051220, end: 20060119
  2. LISPRO 25LIS75NPL [Suspect]
     Dosage: 12 IU, EACH EVENING
     Dates: start: 20051220, end: 20060119
  3. NOVOLIN R [Concomitant]
     Dosage: 32 IU, DAILY (1/D)
     Dates: start: 20060120
  4. NOVOLIN R [Concomitant]
     Dosage: 30 IU, DAILY (1/D)
     Dates: start: 20060628
  5. NOVOLIN N [Concomitant]
     Dosage: 12 IU, DAILY (1/D)
     Dates: start: 20060120
  6. NORVASK [Concomitant]
     Indication: HYPERTENSION
     Dosage: 5 MG, DAILY (1/D)
     Route: 048
  7. DIOVANE [Concomitant]
     Indication: HYPERTENSION
     Dosage: 50 MG, DAILY (1/D)
     Route: 048
  8. ALLOPURINOL [Concomitant]
     Indication: HYPERURICAEMIA
     Dosage: 100 MG, DAILY (1/D)
     Route: 048
  9. THYRADIN [Concomitant]
     Indication: THYROIDITIS CHRONIC
     Dosage: 50 UG, DAILY (1/D)
     Route: 048

REACTIONS (1)
  - FACIAL PALSY [None]
